FAERS Safety Report 7230295 (Version 4)
Quarter: 2012Q4

REPORT INFORMATION
  Report Type: Report from Study
  Country: PE (occurrence: PE)
  Receive Date: 20091224
  Receipt Date: 20121228
  Transmission Date: 20130627
  Serious: Yes (Other)
  Sender: FDA-Public Use
  Company Number: PE-PFIZER INC-2009309020

PATIENT
  Age: 20 Year
  Sex: Female
  Weight: 59.5 kg

DRUGS (5)
  1. LEVETIRACETAM [Suspect]
     Indication: PARTIAL SEIZURES
     Dosage: 1000 mg/day
     Route: 048
     Dates: start: 20091117, end: 20091208
  2. LEVETIRACETAM [Suspect]
     Dosage: 6000 mg/day
     Route: 048
     Dates: start: 20091209, end: 20091209
  3. LEVETIRACETAM [Suspect]
     Dosage: 0 mg/day
     Route: 048
     Dates: start: 20091210
  4. CLONAZEPAM [Concomitant]
     Indication: PARTIAL SEIZURES
     Dosage: 2 mg, 2x/day
     Dates: start: 19950216
  5. CARBAMAZEPINE [Concomitant]
     Indication: PARTIAL SEIZURES
     Dosage: 400 mg, 2x/day
     Dates: start: 20010101

REACTIONS (3)
  - Sedation [Recovered/Resolved]
  - Intentional overdose [Recovered/Resolved]
  - Suicide attempt [Recovered/Resolved]
